FAERS Safety Report 6445224-7 (Version None)
Quarter: 2009Q4

REPORT INFORMATION
  Report Type: 
  Country: None (occurrence: None)
  Receive Date: 20091118
  Receipt Date: 20091111
  Transmission Date: 20100525
  Serious: Yes (Hospitalization, Other)
  Sender: FDA-Public Use
  Company Number: JP-PFIZER INC-2009297408

PATIENT
  Age: 16 Year
  Sex: Female

DRUGS (1)
  1. AZULFIDINE [Suspect]
     Indication: JUVENILE ARTHRITIS
     Route: 048

REACTIONS (6)
  - DECREASED APPETITE [None]
  - DRUG RASH WITH EOSINOPHILIA AND SYSTEMIC SYMPTOMS [None]
  - LYMPHADENOPATHY [None]
  - OROPHARYNGEAL PAIN [None]
  - PYREXIA [None]
  - RASH ERYTHEMATOUS [None]
